FAERS Safety Report 24539999 (Version 1)
Quarter: 2024Q4

REPORT INFORMATION
  Report Type: Spontaneous
  Country: PR (occurrence: PR)
  Receive Date: 20241023
  Receipt Date: 20241023
  Transmission Date: 20250114
  Serious: Yes (Other)
  Sender: JOHNSON AND JOHNSON
  Company Number: PR-JNJFOC-20241042893

PATIENT
  Sex: Female

DRUGS (1)
  1. RYBREVANT [Suspect]
     Active Substance: AMIVANTAMAB-VMJW
     Indication: Non-small cell lung cancer
     Route: 042
     Dates: start: 20241010, end: 20241010

REACTIONS (5)
  - Infusion related reaction [Unknown]
  - Oxygen saturation decreased [Unknown]
  - Chest pain [Unknown]
  - Ocular discomfort [Unknown]
  - Headache [Unknown]

NARRATIVE: CASE EVENT DATE: 20241010
